FAERS Safety Report 17684765 (Version 2)
Quarter: 2020Q2

REPORT INFORMATION
  Report Type: Report from Study
  Country: FR (occurrence: FR)
  Receive Date: 20200420
  Receipt Date: 20200424
  Transmission Date: 20200714
  Serious: No
  Sender: FDA-Public Use
  Company Number: FR-BIOGEN-2020BI00852003

PATIENT
  Age: 61 Year
  Sex: Female

DRUGS (1)
  1. FAMPYRA [Suspect]
     Active Substance: DALFAMPRIDINE
     Indication: SECONDARY PROGRESSIVE MULTIPLE SCLEROSIS
     Route: 048
     Dates: start: 20160331, end: 20170102

REACTIONS (5)
  - Urinary tract infection [Recovered/Resolved]
  - Agranulocytosis [Recovered/Resolved]
  - Multiple sclerosis relapse [Recovered/Resolved]
  - Urinary tract infection [Recovered/Resolved]
  - Multiple sclerosis relapse [Recovered/Resolved]

NARRATIVE: CASE EVENT DATE: 20160621
